FAERS Safety Report 16830352 (Version 1)
Quarter: 2019Q3

REPORT INFORMATION
  Report Type: Spontaneous
  Country: US (occurrence: US)
  Receive Date: 20190920
  Receipt Date: 20190920
  Transmission Date: 20191005
  Serious: Yes (Other)
  Sender: FDA-Public Use
  Company Number: US-ALVOGEN-2018-ALVOGEN-097797

PATIENT
  Age: 69 Year
  Sex: Female
  Weight: 79.83 kg

DRUGS (32)
  1. BACITRACIN. [Concomitant]
     Active Substance: BACITRACIN
     Indication: PROPHYLAXIS
     Dates: start: 20181022, end: 20181022
  2. MIDAZOLAM HYDROCHLORIDE. [Concomitant]
     Active Substance: MIDAZOLAM HYDROCHLORIDE
     Indication: SEDATION
     Dates: start: 20181022, end: 20181022
  3. EPHEDRINE. [Concomitant]
     Active Substance: EPHEDRINE
     Indication: HYPOTENSION
     Dates: start: 20181022, end: 20181022
  4. TIZANIDINE HYDROCHLORIDE. [Concomitant]
     Active Substance: TIZANIDINE HYDROCHLORIDE
     Indication: MUSCLE RELAXANT THERAPY
     Dates: start: 20181022, end: 20181025
  5. PHENYLEPHRINE HYDROCHLORIDE. [Concomitant]
     Active Substance: PHENYLEPHRINE HYDROCHLORIDE
     Dates: start: 20181022, end: 20181022
  6. FENTANYL. [Concomitant]
     Active Substance: FENTANYL
     Indication: PAIN
     Route: 042
  7. PLACEBO [Suspect]
     Active Substance: UNSPECIFIED INGREDIENT
     Indication: IMMUNISATION
     Dates: start: 20180410, end: 20180410
  8. INSULIN LISPRO [Concomitant]
     Active Substance: INSULIN LISPRO
     Indication: DIABETES MELLITUS
     Dates: start: 20181023, end: 20181025
  9. CARVEDILOL. [Concomitant]
     Active Substance: CARVEDILOL
     Indication: HYPERTENSION
     Dates: start: 20181022, end: 20181025
  10. CYCLOBENZAPRINE HYDROCHLORIDE. [Concomitant]
     Active Substance: CYCLOBENZAPRINE HYDROCHLORIDE
     Indication: MUSCLE RELAXANT THERAPY
     Dates: start: 20181022, end: 20181022
  11. INSULIN [Concomitant]
     Active Substance: INSULIN NOS
     Indication: DIABETES MELLITUS
     Dates: start: 20181022, end: 20181022
  12. HYDROCODONE BITARTRATE/PARACETAMOL [Concomitant]
     Indication: PRODUCT USED FOR UNKNOWN INDICATION
     Dates: start: 20181022, end: 20181025
  13. VANCOMYCIN [Concomitant]
     Active Substance: VANCOMYCIN
     Indication: PROPHYLAXIS
     Dates: start: 20181022, end: 20181022
  14. METFORMIN HYDROCHLORIDE. [Concomitant]
     Active Substance: METFORMIN HYDROCHLORIDE
     Indication: DIABETES MELLITUS MANAGEMENT
     Dates: start: 20181022, end: 20181025
  15. ROCURONIUM BROMIDE. [Concomitant]
     Active Substance: ROCURONIUM BROMIDE
     Indication: MUSCLE RELAXANT THERAPY
     Dates: start: 20181022, end: 20181022
  16. PROPOFOL. [Concomitant]
     Active Substance: PROPOFOL
     Indication: SEDATION
     Dates: start: 20181022, end: 20181022
  17. FAMOTIDINE. [Concomitant]
     Active Substance: FAMOTIDINE
     Indication: ACIDOSIS
     Dates: start: 20181022
  18. ABSORBABLE GELATIN SPONGE [Concomitant]
     Indication: HAEMOSTASIS
     Dates: start: 20181022, end: 20181022
  19. ONDANSETRON [Concomitant]
     Active Substance: ONDANSETRON
     Indication: PRODUCT USED FOR UNKNOWN INDICATION
     Dates: start: 20181022, end: 20181022
  20. PETHIDINE HYDROCHLORIDE [Concomitant]
     Active Substance: MEPERIDINE HYDROCHLORIDE
     Indication: PAIN
     Dates: start: 20181022, end: 20181022
  21. PARACETAMOL [Concomitant]
     Active Substance: ACETAMINOPHEN
     Indication: PAIN
     Dates: start: 20181022, end: 20181022
  22. SUCCINYLCHOLINE CHLORIDE. [Concomitant]
     Active Substance: SUCCINYLCHOLINE CHLORIDE
     Indication: MUSCLE RELAXANT THERAPY
     Dates: start: 20181022, end: 20181022
  23. GABAPENTIN. [Concomitant]
     Active Substance: GABAPENTIN
     Indication: NEURALGIA
     Route: 048
     Dates: start: 20181022, end: 20181023
  24. CLINDAMYCIN. [Suspect]
     Active Substance: CLINDAMYCIN
     Indication: PROPHYLAXIS
     Dosage: ONCE EVERY 8 HRS
     Route: 030
     Dates: start: 20181022, end: 20181023
  25. NEOSTIGMINE. [Concomitant]
     Active Substance: NEOSTIGMINE METHYLSULFATE
     Indication: REVERSAL OF SEDATION
     Dates: start: 20181022, end: 20181022
  26. DOCUSATE SODIUM. [Concomitant]
     Active Substance: DOCUSATE SODIUM
     Indication: CONSTIPATION
     Dates: start: 20181022, end: 20181025
  27. LIDOCAINE. [Concomitant]
     Active Substance: LIDOCAINE
     Indication: ANAESTHESIA
     Dates: start: 20181022, end: 20181022
  28. MUPIROCIN. [Concomitant]
     Active Substance: MUPIROCIN
     Indication: PROPHYLAXIS
     Dates: start: 20181017, end: 20181022
  29. LEVAQUIN [Concomitant]
     Active Substance: LEVOFLOXACIN
     Indication: PROPHYLAXIS
     Dosage: UNK
     Dates: start: 20181022, end: 20181022
  30. METHADONE HYDROCHLORIDE. [Concomitant]
     Active Substance: METHADONE HYDROCHLORIDE
     Indication: PAIN
     Dates: start: 20181022
  31. THROMBIN [Concomitant]
     Active Substance: THROMBIN
     Dates: start: 20181022, end: 20181022
  32. HYDROMORPHONE HYDROCHLORIDE. [Concomitant]
     Active Substance: HYDROMORPHONE HYDROCHLORIDE
     Indication: PAIN
     Route: 042
     Dates: start: 20181022, end: 20181022

REACTIONS (1)
  - Hypersensitivity [Recovered/Resolved]
